FAERS Safety Report 7518606-X (Version None)
Quarter: 2011Q2

REPORT INFORMATION
  Report Type: 
  Country: None (occurrence: None)
  Receive Date: 20110523
  Receipt Date: 20110511
  Transmission Date: 20111010
  Serious: Yes (Other)
  Sender: FDA-Public Use
  Company Number: DSJ-2011-09298

PATIENT
  Age: 7 Decade
  Sex: Female

DRUGS (3)
  1. METFORMIN HCL [Concomitant]
  2. OLMESARTAN MEDOXOMIL/AMLODIPINE BESYLATE/HYDROCHLOROTHIAZIDE [Suspect]
     Indication: HYPERTENSION
     Dosage: 40/5 MG (1 IN 1 D), PER ORAL
     Route: 048
     Dates: start: 20100701
  3. GLIMEPIRIDE/METFORMIN (METFORMIN, GLIMEPIRIDE) [Concomitant]

REACTIONS (3)
  - DRUG INEFFECTIVE [None]
  - ARTERIOSCLEROSIS [None]
  - BLOOD PRESSURE SYSTOLIC INCREASED [None]
